FAERS Safety Report 7655038-8 (Version None)
Quarter: 2011Q3

REPORT INFORMATION
  Report Type: 
  Country: None (occurrence: None)
  Receive Date: 20110804
  Receipt Date: 20110726
  Transmission Date: 20111222
  Serious: Yes (Hospitalization)
  Sender: FDA-Public Use
  Company Number: US-US-EMD SERONO, INC.-7059217

PATIENT
  Sex: Female

DRUGS (12)
  1. REBIF [Suspect]
     Indication: RELAPSING-REMITTING MULTIPLE SCLEROSIS
     Route: 058
     Dates: start: 20110412
  2. ZOLPIDEM [Concomitant]
     Indication: INSOMNIA
     Route: 048
  3. PREDNISONE [Concomitant]
     Route: 048
  4. ZOLPIDEM [Concomitant]
     Route: 048
  5. GABAPENTIN [Concomitant]
     Indication: PAIN
     Route: 048
     Dates: start: 20110411
  6. MODAFINIL [Concomitant]
     Route: 048
     Dates: start: 20110410
  7. MODAFINIL [Concomitant]
     Route: 048
  8. ACETAMINOPHEN [Concomitant]
     Route: 048
  9. HYDROCODONE [Concomitant]
     Route: 048
  10. TRAZODONE HYDROCHLORIDE [Concomitant]
     Indication: INSOMNIA
  11. FAMOTIDINE [Concomitant]
     Route: 048
     Dates: start: 20110409
  12. GABAPENTIN [Concomitant]
     Route: 048
     Dates: start: 20110617

REACTIONS (2)
  - DYSPNOEA EXERTIONAL [None]
  - MULTIPLE SCLEROSIS RELAPSE [None]
